FAERS Safety Report 9898372 (Version 1)
Quarter: 2014Q1

REPORT INFORMATION
  Report Type: Spontaneous
  Country: IT (occurrence: IT)
  Receive Date: 20140214
  Receipt Date: 20140214
  Transmission Date: 20141002
  Serious: Yes (Death, Hospitalization)
  Sender: FDA-Public Use
  Company Number: IT-ELI_LILLY_AND_COMPANY-IT201402002557

PATIENT
  Age: 78 Year
  Sex: Male

DRUGS (2)
  1. ALIMTA [Suspect]
     Indication: LUNG CARCINOMA CELL TYPE UNSPECIFIED RECURRENT
     Dosage: 750 MG, CYCLICAL
     Route: 042
     Dates: start: 20131030, end: 20131212
  2. CARBOPLATIN [Suspect]
     Indication: LUNG CARCINOMA CELL TYPE UNSPECIFIED RECURRENT
     Dosage: 400 MG, CYCLICAL
     Route: 042
     Dates: start: 20131030, end: 20131212

REACTIONS (3)
  - Haemothorax [Fatal]
  - Cardiac arrest [Fatal]
  - Off label use [Unknown]
